FAERS Safety Report 5631979-8 (Version None)
Quarter: 2008Q1

REPORT INFORMATION
  Report Type: 
  Country: None (occurrence: None)
  Receive Date: 20080220
  Receipt Date: 20080212
  Transmission Date: 20080703
  Serious: Yes (Other)
  Sender: FDA-Public Use
  Company Number: BR-ELI_LILLY_AND_COMPANY-BR200802002672

PATIENT
  Sex: Female
  Weight: 68 kg

DRUGS (1)
  1. GEMZAR [Suspect]
     Indication: LUNG CANCER METASTATIC
     Dosage: 2 G, OTHER
     Route: 042
     Dates: end: 20080211

REACTIONS (4)
  - DYSPNOEA [None]
  - FEELING HOT [None]
  - FLUSHING [None]
  - MALAISE [None]
